FAERS Safety Report 16974333 (Version 1)
Quarter: 2019Q4

REPORT INFORMATION
  Report Type: Spontaneous
  Country: US (occurrence: US)
  Receive Date: 20190913
  Receipt Date: 20190913
  Transmission Date: 20200122
  Serious: No
  Sender: FDA-Public Use
  Company Number: None

PATIENT
  Age: 62 Year
  Sex: Female

DRUGS (1)
  1. REMICADE [Suspect]
     Active Substance: INFLIXIMAB
     Indication: CROHN^S DISEASE
     Dosage: ?          OTHER FREQUENCY:EVERY6WEEKS;?
     Dates: start: 20171129

REACTIONS (4)
  - Malaise [None]
  - Headache [None]
  - Ear pain [None]
  - Ear discomfort [None]

NARRATIVE: CASE EVENT DATE: 20190724
